FAERS Safety Report 5422283-1 (Version None)
Quarter: 2007Q3

REPORT INFORMATION
  Report Type: 
  Country: None (occurrence: None)
  Receive Date: 20070820
  Receipt Date: 20070820
  Transmission Date: 20080115
  Serious: Yes (Other)
  Sender: FDA-Public Use
  Company Number: None

PATIENT
  Age: 44 Year
  Sex: Female
  Weight: 70.3075 kg

DRUGS (1)
  1. METRONIDAZOLE [Suspect]
     Indication: INFECTION
     Dosage: 1 A DAY FOR 5 DAYS VAG
     Route: 067
     Dates: start: 20070815, end: 20070817

REACTIONS (9)
  - DIARRHOEA [None]
  - GINGIVAL BLISTER [None]
  - LIP SWELLING [None]
  - ORAL PAIN [None]
  - PYREXIA [None]
  - SWELLING FACE [None]
  - SWOLLEN TONGUE [None]
  - TONGUE BLISTERING [None]
  - VAGINAL DISCHARGE [None]
